FAERS Safety Report 8116852-8 (Version None)
Quarter: 2012Q1

REPORT INFORMATION
  Report Type: 
  Country: None (occurrence: None)
  Receive Date: 20120206
  Receipt Date: 20120201
  Transmission Date: 20120608
  Serious: Yes (Other)
  Sender: FDA-Public Use
  Company Number: PHHY2012AU008758

PATIENT
  Sex: Female

DRUGS (1)
  1. ZOLEDRONOC ACID [Suspect]
     Indication: OSTEOPOROSIS
     Dosage: 5 MG, UNK
     Route: 042
     Dates: start: 20110125

REACTIONS (6)
  - LYMPHADENOPATHY [None]
  - OSTEOMYELITIS [None]
  - TOOTH LOSS [None]
  - OEDEMA PERIPHERAL [None]
  - OSTEONECROSIS OF JAW [None]
  - JOINT SWELLING [None]
